FAERS Safety Report 18814674 (Version 1)
Quarter: 2021Q1

REPORT INFORMATION
  Report Type: Spontaneous
  Country: BE (occurrence: BE)
  Receive Date: 20210201
  Receipt Date: 20210201
  Transmission Date: 20210419
  Serious: Yes (Other)
  Sender: FDA-Public Use
  Company Number: BE-ACCORD-215295

PATIENT
  Sex: Female
  Weight: 78 kg

DRUGS (12)
  1. IBUPROFEN. [Concomitant]
     Active Substance: IBUPROFEN
     Dosage: STRENGTH?600 MG  (USE CAREFULLY)
  2. D?CURE [Concomitant]
     Active Substance: CHOLECALCIFEROL
     Dosage: 1 AMP PER MONTH
  3. UNI DIAMICRON [Concomitant]
     Active Substance: GLICLAZIDE
     Dosage: STRENGTH?60 MG
  4. CARBOPLATIN ACCORD [Suspect]
     Active Substance: CARBOPLATIN
     Indication: OVARIAN CANCER
     Dosage: STRENGTH:600MG/60ML, EVERY 3 WEEKS
     Route: 042
     Dates: start: 20201016, end: 20201224
  5. VICTOZA [Concomitant]
     Active Substance: LIRAGLUTIDE
     Dosage: STRENGTH?1.8 MG, 1 X/DAY
     Route: 058
  6. PARIET [Concomitant]
     Active Substance: RABEPRAZOLE SODIUM
     Dosage: ATRENGTH?10 MG
  7. TRESIBA FLEXPEN 26 E [Concomitant]
     Dosage: AT 10 PM
  8. GEMCITABINE. [Concomitant]
     Active Substance: GEMCITABINE
     Indication: OVARIAN CANCER
     Dosage: STRENGTH?1496MG, EVERY 3 WEEKS
     Route: 042
     Dates: start: 20201016
  9. ASAFLOW [Concomitant]
     Active Substance: ASPIRIN
     Dosage: STRENGTH? 80 MG
  10. GLUCOPHAGE [Concomitant]
     Active Substance: METFORMIN HYDROCHLORIDE
     Dosage: STRENGTH?850 MG
  11. LISINOPRIL. [Concomitant]
     Active Substance: LISINOPRIL
     Dosage: STRENGTH? 5 MG
  12. INEGY [Concomitant]
     Active Substance: EZETIMIBE\SIMVASTATIN
     Dosage: STRENGTH?10/40 MG

REACTIONS (3)
  - Angioedema [Recovered/Resolved]
  - Pruritus [Recovered/Resolved]
  - Dyspnoea [Recovered/Resolved]

NARRATIVE: CASE EVENT DATE: 20201224
